FAERS Safety Report 25609015 (Version 3)
Quarter: 2025Q3

REPORT INFORMATION
  Report Type: Spontaneous
  Country: US (occurrence: US)
  Receive Date: 20250726
  Receipt Date: 20250828
  Transmission Date: 20251020
  Serious: No
  Sender: SANOFI AVENTIS
  Company Number: US-SA-2025SA215023

PATIENT
  Age: 60 Year
  Sex: Female

DRUGS (5)
  1. DUPIXENT [Suspect]
     Active Substance: DUPILUMAB
     Indication: Asthma
     Route: 058
     Dates: start: 20250618, end: 20250618
  2. DUPIXENT [Suspect]
     Active Substance: DUPILUMAB
     Dosage: 300 MG, QOW
     Route: 058
     Dates: start: 202506
  3. DUPIXENT [Suspect]
     Active Substance: DUPILUMAB
     Dates: start: 20250615
  4. TIOTROPIUM [Concomitant]
     Active Substance: TIOTROPIUM
  5. CETIRIZINE [Concomitant]
     Active Substance: CETIRIZINE HYDROCHLORIDE

REACTIONS (8)
  - Pain in jaw [Recovered/Resolved]
  - Tinnitus [Recovered/Resolved]
  - Abdominal pain upper [Recovered/Resolved]
  - Constipation [Recovered/Resolved]
  - Chromaturia [Not Recovered/Not Resolved]
  - Cough [Recovered/Resolved]
  - Oropharyngeal pain [Recovered/Resolved]
  - Dry eye [Recovered/Resolved]

NARRATIVE: CASE EVENT DATE: 20250101
